FAERS Safety Report 4890585-3 (Version None)
Quarter: 2006Q1

REPORT INFORMATION
  Report Type: 
  Country: None (occurrence: None)
  Receive Date: 20060125
  Receipt Date: 20060113
  Transmission Date: 20060701
  Serious: Yes (Hospitalization)
  Sender: FDA-Public Use
  Company Number: IT-JNJFOC-20040808103

PATIENT
  Weight: 83 kg

DRUGS (9)
  1. REOPRO [Suspect]
     Dosage: 04.0 ML IN 50 ML OF DILUENT   TOTAL INFUSION 50 ML
     Route: 042
  2. REOPRO [Suspect]
     Indication: ACUTE MYOCARDIAL INFARCTION
     Route: 042
  3. RETEPLASE [Suspect]
     Indication: ACUTE MYOCARDIAL INFARCTION
     Route: 042
  4. HEPARIN [Concomitant]
     Dosage: HEPARIN INFUSION AT 580 UNITS/HOUR
  5. HEPARIN [Concomitant]
  6. ACETYLSALICYLIC ACID [Concomitant]
  7. BETA BLOCKERS [Concomitant]
  8. ACE INHIBITORS [Concomitant]
  9. STATINS [Concomitant]

REACTIONS (5)
  - BLOOD CHOLESTEROL INCREASED [None]
  - BLOOD PRESSURE DIASTOLIC DECREASED [None]
  - BLOOD PRESSURE SYSTOLIC INCREASED [None]
  - CARDIAC FAILURE CONGESTIVE [None]
  - MYOCARDIAL ISCHAEMIA [None]
